FAERS Safety Report 7419844-7 (Version None)
Quarter: 2011Q2

REPORT INFORMATION
  Report Type: 
  Country: None (occurrence: None)
  Receive Date: 20110413
  Receipt Date: 20110413
  Transmission Date: 20111010
  Serious: Yes (Disabling, Other)
  Sender: FDA-Public Use
  Company Number: None

PATIENT
  Age: 55 Year
  Sex: Female
  Weight: 61.2356 kg

DRUGS (1)
  1. HYDROXYCHLOROQUINE SULFATE [Suspect]
     Indication: SYSTEMIC LUPUS ERYTHEMATOSUS
     Dosage: 200MG TWICE A DAY 1982 - 2005 OR 6
     Dates: start: 19820101

REACTIONS (2)
  - VISUAL FIELD DEFECT [None]
  - TOXICITY TO VARIOUS AGENTS [None]
